FAERS Safety Report 8529089 (Version 4)
Quarter: 2012Q4

REPORT INFORMATION
  Report Type: 
  Country: US (occurrence: US)
  Receive Date: 20120425
  Receipt Date: 20121227
  Transmission Date: 20130627
  Serious: Yes (Other)
  Sender: FDA-Public Use
  Company Number: US-PFIZER INC-2012100646

PATIENT
  Age: 52 Year
  Sex: Male
  Weight: 113.38 kg

DRUGS (8)
  1. LYRICA [Suspect]
     Indication: FIBROMYALGIA
     Dosage: 150 mg, 2x/day
     Route: 048
     Dates: start: 2011, end: 2011
  2. LYRICA [Suspect]
     Dosage: 150 mg, 3x/day
     Route: 048
     Dates: start: 2011
  3. LYRICA [Suspect]
     Dosage: 150 mg, 3x/day
     Route: 048
     Dates: end: 20121013
  4. NEURONTIN [Suspect]
     Dosage: UNK
  5. SAVELLA [Concomitant]
     Dosage: 1 mg, 1x/day
  6. TRAZODONE [Concomitant]
     Indication: SLEEP PROBLEM
     Dosage: 300 mg, UNK
  7. TRAZODONE [Concomitant]
     Indication: DEPRESSION
  8. ROXICODONE [Concomitant]
     Indication: GENERAL BODY PAIN
     Dosage: 15 mg, 4x/day

REACTIONS (12)
  - Autoimmune disorder [Unknown]
  - Impaired work ability [Unknown]
  - Paraesthesia [Not Recovered/Not Resolved]
  - Laboratory test abnormal [Unknown]
  - Feeling abnormal [Not Recovered/Not Resolved]
  - Feeling cold [Not Recovered/Not Resolved]
  - Drug effect incomplete [Unknown]
  - Pain [Not Recovered/Not Resolved]
  - Weight increased [Unknown]
  - Constipation [Unknown]
  - Hot flush [Unknown]
  - Drug ineffective [Unknown]
